FAERS Safety Report 10144818 (Version 1)
Quarter: 2014Q2

REPORT INFORMATION
  Report Type: Spontaneous
  Country: US (occurrence: US)
  Receive Date: 20140430
  Receipt Date: 20140430
  Transmission Date: 20141212
  Serious: No
  Sender: FDA-Public Use
  Company Number: US-SA-2014SA005572

PATIENT
  Age: 75 Year
  Sex: Female

DRUGS (1)
  1. ENOXAPARIN SODIUM - WINTHROP [Suspect]
     Indication: THROMBOSIS
     Route: 065

REACTIONS (7)
  - Balance disorder [Not Recovered/Not Resolved]
  - Aphasia [Not Recovered/Not Resolved]
  - Muscular weakness [Not Recovered/Not Resolved]
  - Muscular weakness [Not Recovered/Not Resolved]
  - Injection site reaction [Not Recovered/Not Resolved]
  - Injury associated with device [Unknown]
  - Drug administered at inappropriate site [Unknown]
